FAERS Safety Report 4759148-4 (Version None)
Quarter: 2005Q3

REPORT INFORMATION
  Report Type: 
  Country: None (occurrence: None)
  Receive Date: 20050826
  Receipt Date: 20050815
  Transmission Date: 20060218
  Serious: Yes (Hospitalization)
  Sender: FDA-Public Use
  Company Number: 2005-02997

PATIENT
  Age: 75 Year
  Sex: Female
  Weight: 54.4 kg

DRUGS (9)
  1. OXYTROL [Suspect]
     Indication: INCONTINENCE
     Dosage: SEE IMAGE
     Route: 062
     Dates: start: 20030101, end: 20040201
  2. OXYTROL [Suspect]
     Indication: INCONTINENCE
     Dosage: SEE IMAGE
     Route: 062
     Dates: start: 20040301, end: 20050201
  3. OXYTROL [Suspect]
     Indication: INCONTINENCE
     Dosage: SEE IMAGE
     Route: 062
     Dates: start: 20050201
  4. BISACODYL (BISACODYL) [Suspect]
     Indication: COLONOSCOPY
     Dosage: 4 TABLET, SINGLE, ORAL
     Route: 048
     Dates: start: 20050222, end: 20050222
  5. BISACODYL (BISACODYL) [Suspect]
     Indication: PREOPERATIVE CARE
     Dosage: 4 TABLET, SINGLE, ORAL
     Route: 048
     Dates: start: 20050222, end: 20050222
  6. TAMBOCOR [Concomitant]
  7. VASOTEC RPD [Concomitant]
  8. SYNTHROID [Concomitant]
  9. MEXITIL [Concomitant]

REACTIONS (13)
  - ABASIA [None]
  - BLOOD ELECTROLYTES DECREASED [None]
  - BOWEL MOVEMENT IRREGULARITY [None]
  - CYSTITIS [None]
  - DEHYDRATION [None]
  - DEMENTIA [None]
  - DRUG INEFFECTIVE [None]
  - FEELING HOT [None]
  - FUNGAL SKIN INFECTION [None]
  - HYPERHIDROSIS [None]
  - LOSS OF CONSCIOUSNESS [None]
  - TREMOR [None]
  - VOMITING [None]
